FAERS Safety Report 7542308-7 (Version None)
Quarter: 2011Q2

REPORT INFORMATION
  Report Type: 
  Country: None (occurrence: None)
  Receive Date: 20110613
  Receipt Date: 20110602
  Transmission Date: 20111010
  Serious: Yes (Other)
  Sender: FDA-Public Use
  Company Number: AU-ASTRAZENECA-2011SE34148

PATIENT
  Age: 76 Year
  Sex: Female

DRUGS (2)
  1. TOPROL-XL [Suspect]
     Route: 048
     Dates: start: 20101115, end: 20110124
  2. PROTOS [Suspect]
     Indication: BONE DISORDER
     Route: 048

REACTIONS (3)
  - FATIGUE [None]
  - LETHARGY [None]
  - RENAL IMPAIRMENT [None]
